FAERS Safety Report 4932990-2 (Version None)
Quarter: 2006Q1

REPORT INFORMATION
  Report Type: 
  Country: None (occurrence: None)
  Receive Date: 20060302
  Receipt Date: 20060302
  Transmission Date: 20060701
  Serious: Yes (Hospitalization)
  Sender: FDA-Public Use
  Company Number: None

PATIENT
  Age: 68 Year
  Sex: Female
  Weight: 49.4421 kg

DRUGS (3)
  1. TAXOL [Suspect]
     Indication: NEOPLASM MALIGNANT
     Dosage: SEE ATTACHED
  2. CARBOPLATIN [Suspect]
  3. ERBITREX [Suspect]

REACTIONS (4)
  - ANAEMIA [None]
  - CLOSTRIDIUM COLITIS [None]
  - HEADACHE [None]
  - NEUTROPENIA [None]
